FAERS Safety Report 8030863-2 (Version None)
Quarter: 2011Q4

REPORT INFORMATION
  Report Type: 
  Country: None (occurrence: None)
  Receive Date: 20111202
  Receipt Date: 20111202
  Transmission Date: 20120403
  Serious: Yes (Hospitalization, Other)
  Sender: FDA-Public Use
  Company Number: 2010SP048853

PATIENT
  Age: 46 Year
  Sex: Female
  Weight: 79.3795 kg

DRUGS (4)
  1. NUVARING [Suspect]
     Indication: MOOD SWINGS
     Dosage: ;QM
     Dates: start: 20071008, end: 20080901
  2. NUVARING [Suspect]
     Indication: MENSTRUATION IRREGULAR
     Dosage: ;QM
     Dates: start: 20071008, end: 20080901
  3. NUVARING [Suspect]
     Indication: MENOPAUSAL SYMPTOMS
     Dosage: ;QM
     Dates: start: 20071008, end: 20080901
  4. BACLOFEN [Concomitant]

REACTIONS (7)
  - HYPERTENSION [None]
  - WEIGHT INCREASED [None]
  - DEEP VEIN THROMBOSIS [None]
  - SOMNOLENCE [None]
  - CELLULITIS [None]
  - OEDEMA PERIPHERAL [None]
  - URINARY TRACT INFECTION [None]
